FAERS Safety Report 23717047 (Version 3)
Quarter: 2024Q3

REPORT INFORMATION
  Report Type: Report from Study
  Country: JP (occurrence: JP)
  Receive Date: 20240408
  Receipt Date: 20240701
  Transmission Date: 20241017
  Serious: Yes (Hospitalization, Other)
  Sender: IPSEN
  Company Number: JP-EXELIXIS-CABO-2023-10587

PATIENT
  Age: 75 Year
  Sex: Female

DRUGS (5)
  1. LANREOTIDE ACETATE [Suspect]
     Active Substance: LANREOTIDE ACETATE
     Indication: Thyroid stimulating hormone-producing pituitary tumour
     Dosage: 90 MILLIGRAM PER 8-9 WEEKS
     Route: 058
     Dates: start: 20130121, end: 20230126
  2. LANREOTIDE ACETATE [Suspect]
     Active Substance: LANREOTIDE ACETATE
     Dosage: 90 MILLIGRAM PER 7-9 WEEKS
     Route: 058
     Dates: start: 20230420
  3. METHYLCOBALAMIN [Concomitant]
     Active Substance: METHYLCOBALAMIN
     Indication: Lupus miliaris disseminatus faciei
     Route: 048
  4. SHIGMABITAN [Concomitant]
     Indication: Lupus miliaris disseminatus faciei
     Route: 048
     Dates: end: 20231011
  5. GLYCOSAMINOGLYCANS [Concomitant]
     Active Substance: GLYCOSAMINOGLYCANS
     Indication: Xeroderma
     Dosage: ADEQUATE DOSE TWICE DAILY
     Route: 061

REACTIONS (8)
  - Aortic valve incompetence [Not Recovered/Not Resolved]
  - Meningioma [Recovered/Resolved]
  - Gait disturbance [Recovered/Resolved]
  - Gait disturbance [Recovered/Resolved]
  - Urinary incontinence [Recovered/Resolved]
  - Pollakiuria [Recovered/Resolved]
  - Dyspraxia [Recovered/Resolved]
  - Prescribed underdose [Unknown]

NARRATIVE: CASE EVENT DATE: 20130121
